FAERS Safety Report 10385730 (Version 2)
Quarter: 2014Q3

REPORT INFORMATION
  Report Type: Spontaneous
  Country: FR (occurrence: FR)
  Receive Date: 20140814
  Receipt Date: 20140819
  Transmission Date: 20150326
  Serious: Yes (Hospitalization, Other)
  Sender: FDA-Public Use
  Company Number: FR-PFIZER INC-2014223616

PATIENT
  Age: 79 Year
  Sex: Female

DRUGS (9)
  1. ZOLOFT [Suspect]
     Active Substance: SERTRALINE HYDROCHLORIDE
     Dosage: UNK
     Dates: end: 20140516
  2. LASILIX [Concomitant]
     Active Substance: FUROSEMIDE
     Dosage: UNK
  3. CARDENSIEL [Suspect]
     Active Substance: BISOPROLOL FUMARATE
     Dosage: UNK
     Dates: end: 20140516
  4. AMIODARONE [Suspect]
     Active Substance: AMIODARONE
     Dosage: UNK
     Dates: end: 20140516
  5. KALEORID [Concomitant]
     Active Substance: POTASSIUM CHLORIDE
     Dosage: UNK
  6. AERIUS [Concomitant]
     Active Substance: DESLORATADINE
     Dosage: UNK
  7. XARELTO [Concomitant]
     Active Substance: RIVAROXABAN
     Dosage: UNK
  8. JANUVIA [Concomitant]
     Active Substance: SITAGLIPTIN PHOSPHATE
     Dosage: UNK
  9. XANAX [Concomitant]
     Active Substance: ALPRAZOLAM
     Dosage: UNK

REACTIONS (2)
  - Organising pneumonia [Unknown]
  - Obliterative bronchiolitis [Unknown]

NARRATIVE: CASE EVENT DATE: 201405
